FAERS Safety Report 14327937 (Version 1)
Quarter: 2017Q4

REPORT INFORMATION
  Report Type: Spontaneous
  Country: US (occurrence: US)
  Receive Date: 20171226
  Receipt Date: 20171226
  Transmission Date: 20180321
  Serious: No
  Sender: FDA-Public Use
  Company Number: None

PATIENT
  Age: 52 Year
  Sex: Male

DRUGS (9)
  1. OMEGA-3-ACID [Concomitant]
  2. VASCEPA [Concomitant]
     Active Substance: ICOSAPENT ETHYL
  3. APAP/CODEINE [Concomitant]
     Active Substance: ACETAMINOPHEN\CODEINE PHOSPHATE
  4. LINDANE. [Concomitant]
     Active Substance: LINDANE
  5. NIACIN ER [Concomitant]
     Active Substance: NIACIN
  6. MENS MULTI [Concomitant]
  7. ENBREL [Suspect]
     Active Substance: ETANERCEPT
     Indication: PSORIASIS
     Dosage: 1 PEN EVERY WEEK INJECTION
     Dates: start: 20170620
  8. LOSARTAN. [Concomitant]
     Active Substance: LOSARTAN
  9. FLUOCINONIDE OIN [Concomitant]

REACTIONS (2)
  - Nephrolithiasis [None]
  - Rotator cuff repair [None]
